FAERS Safety Report 19101812 (Version 1)
Quarter: 2021Q2

REPORT INFORMATION
  Report Type: Spontaneous
  Country: FI (occurrence: FI)
  Receive Date: 20210407
  Receipt Date: 20210407
  Transmission Date: 20210717
  Serious: Yes (Other)
  Sender: FDA-Public Use
  Company Number: FI-ALKEM LABORATORIES LIMITED-FI-ALKEM-2020-03110

PATIENT
  Age: 41 Year
  Sex: Female

DRUGS (16)
  1. CITALOPRAM [Suspect]
     Active Substance: CITALOPRAM HYDROBROMIDE
     Indication: ANTIDEPRESSANT THERAPY
     Dosage: 20 MILLIGRAM, QD
     Route: 065
     Dates: start: 2005
  2. QUETIAPINE FUMARATE. [Suspect]
     Active Substance: QUETIAPINE FUMARATE
     Dosage: 50 MILLIGRAM, QD
     Route: 065
     Dates: start: 2008, end: 201503
  3. LITHIUM CARBONATE 300 MG [Suspect]
     Active Substance: LITHIUM CARBONATE
     Dosage: 0.5 DOSAGE FORM, QD
     Route: 065
     Dates: start: 201502, end: 201502
  4. CITALOPRAM [Suspect]
     Active Substance: CITALOPRAM HYDROBROMIDE
     Dosage: 50 MILLIGRAM, QD
     Route: 065
  5. QUETIAPINE FUMARATE. [Suspect]
     Active Substance: QUETIAPINE FUMARATE
     Indication: BIPOLAR DISORDER
     Dosage: 25 MILLIGRAM, QD
     Route: 065
     Dates: start: 2008, end: 201503
  6. ZOPICLONE [Suspect]
     Active Substance: ZOPICLONE
     Indication: SLEEP DISORDER
     Dosage: 3.75 MILLIGRAM, QOD
     Route: 065
     Dates: start: 2015, end: 2015
  7. ALPRAZOLAM. [Suspect]
     Active Substance: ALPRAZOLAM
     Indication: SLEEP DISORDER
     Dosage: 0.5 MILLIGRAM, QD
     Route: 065
     Dates: start: 2015
  8. LITHIUM CARBONATE 300 MG [Suspect]
     Active Substance: LITHIUM CARBONATE
     Dosage: 2 DOSAGE FORM, QD
     Route: 065
     Dates: start: 201502, end: 201502
  9. ZOPICLONE [Suspect]
     Active Substance: ZOPICLONE
     Dosage: 7.5 MILLIGRAM, QD
     Route: 065
     Dates: end: 2015
  10. LITHIUM CARBONATE 300 MG [Suspect]
     Active Substance: LITHIUM CARBONATE
     Indication: BIPOLAR DISORDER
     Dosage: 1 DOSAGE FORM
     Route: 065
     Dates: start: 201308
  11. CITALOPRAM [Suspect]
     Active Substance: CITALOPRAM HYDROBROMIDE
     Dosage: 10 MILLIGRAM, QD
     Route: 065
     Dates: start: 2015, end: 2015
  12. ZOPICLONE [Suspect]
     Active Substance: ZOPICLONE
     Dosage: 3.75 MILLIGRAM, QD
     Route: 065
     Dates: start: 2015, end: 2015
  13. CITALOPRAM [Suspect]
     Active Substance: CITALOPRAM HYDROBROMIDE
     Dosage: 5 MILLIGRAM, QD
     Route: 065
     Dates: start: 2015, end: 2015
  14. CITALOPRAM [Suspect]
     Active Substance: CITALOPRAM HYDROBROMIDE
     Dosage: 20 MILLIGRAM, QD
     Route: 065
     Dates: end: 2015
  15. LITHIUM CARBONATE 300 MG [Suspect]
     Active Substance: LITHIUM CARBONATE
     Dosage: 2.5 DOSAGE FORM, QD
     Route: 065
     Dates: end: 201502
  16. LITHIUM CARBONATE 300 MG [Suspect]
     Active Substance: LITHIUM CARBONATE
     Dosage: 1 DOSAGE FORM, QD
     Route: 065
     Dates: start: 201502, end: 201502

REACTIONS (6)
  - Cognitive disorder [Recovering/Resolving]
  - Restless legs syndrome [Not Recovered/Not Resolved]
  - Electric shock sensation [Recovered/Resolved]
  - Insomnia [Recovered/Resolved]
  - Weight increased [Unknown]
  - Drug withdrawal syndrome [Recovering/Resolving]

NARRATIVE: CASE EVENT DATE: 2014
